FAERS Safety Report 14425335 (Version 1)
Quarter: 2018Q1

REPORT INFORMATION
  Report Type: Spontaneous
  Country: US (occurrence: US)
  Receive Date: 20180123
  Receipt Date: 20180123
  Transmission Date: 20180509
  Serious: Yes (Hospitalization, Other)
  Sender: FDA-Public Use
  Company Number: US-ASTRAZENECA-2006BM00557

PATIENT
  Age: 65 Year
  Sex: Female
  Weight: 95.3 kg

DRUGS (5)
  1. BYETTA [Suspect]
     Active Substance: EXENATIDE
     Indication: TYPE 2 DIABETES MELLITUS
     Route: 058
     Dates: start: 20060613, end: 200608
  2. GLUCOPHAGE [Concomitant]
     Active Substance: METFORMIN HYDROCHLORIDE
  3. BYETTA [Suspect]
     Active Substance: EXENATIDE
     Indication: TYPE 2 DIABETES MELLITUS
     Route: 058
     Dates: start: 20060801, end: 20060828
  4. ATENOLOL. [Concomitant]
     Active Substance: ATENOLOL
     Dosage: TWO TIMES A DAY
     Route: 048
  5. GLIPIZIDE. [Concomitant]
     Active Substance: GLIPIZIDE
     Dates: end: 2006

REACTIONS (11)
  - Injection site erythema [Recovering/Resolving]
  - Dyspnoea [Recovering/Resolving]
  - Nausea [Recovered/Resolved]
  - Injection site nodule [Recovering/Resolving]
  - Heart rate increased [Recovered/Resolved]
  - Weight decreased [Unknown]
  - Chest pain [Recovered/Resolved]
  - Injection site pain [Recovering/Resolving]
  - Injection site hypersensitivity [Recovering/Resolving]
  - Skin irritation [Recovering/Resolving]
  - Injection site pruritus [Recovering/Resolving]

NARRATIVE: CASE EVENT DATE: 2006
